FAERS Safety Report 11427461 (Version 2)
Quarter: 2019Q3

REPORT INFORMATION
  Report Type: Report from Study
  Country: US (occurrence: US)
  Receive Date: 20150827
  Receipt Date: 20190807
  Transmission Date: 20191004
  Serious: No
  Sender: FDA-Public Use
  Company Number: US-SA-2015SA012060

PATIENT
  Age: 39 Year
  Sex: Female

DRUGS (5)
  1. AGALSIDASE BETA [Suspect]
     Active Substance: AGALSIDASE BETA
     Indication: FABRY^S DISEASE
     Dosage: 105 Q2
     Route: 041
     Dates: start: 20040915
  2. AGALSIDASE BETA [Suspect]
     Active Substance: AGALSIDASE BETA
     Dosage: 110 MG, QOW
     Route: 041
     Dates: start: 20141219
  3. SOLU-MEDROL [Concomitant]
     Active Substance: METHYLPREDNISOLONE SODIUM SUCCINATE
     Indication: PREMEDICATION
     Dosage: 20 MG,UNK
     Route: 042
  4. BENADRYL [Concomitant]
     Active Substance: DIPHENHYDRAMINE HYDROCHLORIDE
     Indication: PREMEDICATION
     Dosage: 25 MG,UNK
     Route: 065
  5. AGALSIDASE BETA [Suspect]
     Active Substance: AGALSIDASE BETA
     Dosage: 110 MG, QOW
     Route: 041
     Dates: start: 201409

REACTIONS (7)
  - Phlebitis [Unknown]
  - Chest discomfort [Recovered/Resolved]
  - Device occlusion [Unknown]
  - Somatic symptom disorder [Unknown]
  - Anxiety [Unknown]
  - Paraesthesia oral [Recovered/Resolved]
  - Epicondylitis [Unknown]

NARRATIVE: CASE EVENT DATE: 20141219
